FAERS Safety Report 5812641-5 (Version None)
Quarter: 2008Q3

REPORT INFORMATION
  Report Type: 
  Country: None (occurrence: None)
  Receive Date: 20080711
  Receipt Date: 20080610
  Transmission Date: 20090109
  Serious: Yes (Other)
  Sender: FDA-Public Use
  Company Number: 2008S1010314

PATIENT
  Age: 49 Year
  Sex: Female
  Weight: 79.8331 kg

DRUGS (1)
  1. BYSTOLIC [Suspect]
     Indication: HYPERTENSION
     Dosage: 5 MG; EVERY MORNING; ORAL
     Route: 048
     Dates: start: 20080317, end: 20080522

REACTIONS (2)
  - DERMATITIS BULLOUS [None]
  - RASH [None]
